FAERS Safety Report 9851031 (Version 1)
Quarter: 2014Q1

REPORT INFORMATION
  Report Type: Spontaneous
  Country: US (occurrence: US)
  Receive Date: 20140128
  Receipt Date: 20140128
  Transmission Date: 20141002
  Serious: No
  Sender: FDA-Public Use
  Company Number: US-DYAX CORP.-2013DX000108

PATIENT
  Sex: Female
  Weight: 61.29 kg

DRUGS (10)
  1. KALBITOR [Suspect]
     Indication: HEREDITARY ANGIOEDEMA
     Route: 058
     Dates: start: 201111
  2. CINRYZE [Concomitant]
     Indication: HEREDITARY ANGIOEDEMA
     Route: 065
     Dates: start: 2008
  3. AMLODIPINE [Concomitant]
     Indication: CARDIAC DISORDER
     Route: 065
     Dates: start: 2011
  4. ATORVASTATIN [Concomitant]
     Indication: BLOOD CHOLESTEROL
     Dates: start: 2011
  5. ASPIRIN [Concomitant]
     Indication: ANTICOAGULANT THERAPY
     Route: 065
     Dates: start: 2011
  6. PROZAC [Concomitant]
     Indication: PRODUCT USED FOR UNKNOWN INDICATION
     Route: 065
     Dates: start: 2008
  7. LEVOTHYROXINE [Concomitant]
     Indication: THYROID OPERATION
     Route: 065
     Dates: start: 1983
  8. AMOXICILLIN [Concomitant]
     Indication: SINUSITIS
     Route: 065
     Dates: start: 201305, end: 201305
  9. OMNICEF [Concomitant]
     Indication: SINUSITIS
     Route: 065
     Dates: start: 20130525
  10. VERAMYST [Concomitant]
     Indication: SEASONAL ALLERGY
     Route: 065
     Dates: start: 2008

REACTIONS (4)
  - Foot fracture [Recovering/Resolving]
  - Sinusitis [Unknown]
  - Rosacea [Unknown]
  - Gastrooesophageal reflux disease [Unknown]
